FAERS Safety Report 11227145 (Version 1)
Quarter: 2015Q2

REPORT INFORMATION
  Report Type: Spontaneous
  Country: US (occurrence: US)
  Receive Date: 20150630
  Receipt Date: 20150630
  Transmission Date: 20150821
  Serious: Yes (Other)
  Sender: FDA-Public Use
  Company Number: US-ACCORD-031715

PATIENT
  Age: 21 Year
  Sex: Female

DRUGS (1)
  1. TACROLIMUS. [Suspect]
     Active Substance: TACROLIMUS
     Indication: DERMATITIS ATOPIC
     Dosage: RECENTLY INCREASED THE FREQUENCY AND QUANTITY OF APPLICATION
     Route: 061

REACTIONS (1)
  - Rosacea [Recovering/Resolving]
